FAERS Safety Report 9809883 (Version 2)
Quarter: 2015Q4

REPORT INFORMATION
  Report Type: Spontaneous
  Country: US (occurrence: US)
  Receive Date: 20140110
  Receipt Date: 20151228
  Transmission Date: 20160305
  Serious: Yes (Other)
  Sender: FDA-Public Use
  Company Number: US-SANOFI-AVENTIS-2013SA067949

PATIENT
  Age: 45 Year

DRUGS (2)
  1. ASPIRIN. [Concomitant]
     Active Substance: ASPIRIN
     Dates: start: 20101001, end: 20130521
  2. PLAVIX [Suspect]
     Active Substance: CLOPIDOGREL BISULFATE
     Indication: CEREBROVASCULAR ACCIDENT
     Route: 065
     Dates: start: 20101001, end: 20130521

REACTIONS (10)
  - Gait disturbance [Unknown]
  - Dysphagia [Unknown]
  - Hemiparesis [Unknown]
  - Impaired work ability [Unknown]
  - Depression [Unknown]
  - Myocardial infarction [Unknown]
  - Thrombosis [Unknown]
  - Cerebrovascular accident [Unknown]
  - Mental impairment [Unknown]
  - Headache [Unknown]

NARRATIVE: CASE EVENT DATE: 201108
